FAERS Safety Report 6697622-4 (Version None)
Quarter: 2010Q2

REPORT INFORMATION
  Report Type: 
  Country: None (occurrence: None)
  Receive Date: 20100422
  Receipt Date: 20100409
  Transmission Date: 20101027
  Serious: Yes (Hospitalization)
  Sender: FDA-Public Use
  Company Number: KV200801648

PATIENT
  Age: 81 Year
  Sex: Female
  Weight: 90.2 kg

DRUGS (17)
  1. PROPAFENONE HYDROCHLORIDE [Suspect]
     Indication: ATRIAL FIBRILLATION
     Dosage: 150 MG, Q8H, ORAL
     Route: 048
     Dates: start: 20081120
  2. LASIX [Concomitant]
  3. CARDIZEM [Concomitant]
  4. CARVEDILOL [Concomitant]
  5. LYRICA [Concomitant]
  6. CALCIUM (CALCIUM) [Concomitant]
  7. ALTACE [Concomitant]
  8. PRILOSEC [Concomitant]
  9. LIPITOR [Concomitant]
  10. IRON (IRON) [Concomitant]
  11. ASPIRIN [Concomitant]
  12. ALPHAGAN /01341101/ (BRIMONIDINE) [Concomitant]
  13. FOSAMAX [Concomitant]
  14. VITAMIN C /00008001/ (ASCORBIC ACID) [Concomitant]
  15. PULMICORT [Concomitant]
  16. LOVAZA [Concomitant]
  17. INSULIN (INSULIN) [Concomitant]

REACTIONS (23)
  - BACK PAIN [None]
  - BLOOD PRESSURE DECREASED [None]
  - CARDIAC FAILURE CONGESTIVE [None]
  - CARDIOMEGALY [None]
  - COMPRESSION FRACTURE [None]
  - CONFUSIONAL STATE [None]
  - CONSTIPATION [None]
  - FALL [None]
  - FATIGUE [None]
  - FIBULA FRACTURE [None]
  - HEART RATE DECREASED [None]
  - HIATUS HERNIA [None]
  - INFLAMMATION [None]
  - INTERVERTEBRAL DISC DEGENERATION [None]
  - LUNG NEOPLASM [None]
  - NECK PAIN [None]
  - NEOPLASM MALIGNANT [None]
  - OVERDOSE [None]
  - PAIN IN EXTREMITY [None]
  - PRODUCT QUALITY ISSUE [None]
  - REFUSAL OF TREATMENT BY PATIENT [None]
  - THORACIC VERTEBRAL FRACTURE [None]
  - TIBIA FRACTURE [None]
